FAERS Safety Report 13748310 (Version 8)
Quarter: 2019Q2

REPORT INFORMATION
  Report Type: Spontaneous
  Country: US (occurrence: US)
  Receive Date: 20170713
  Receipt Date: 20190425
  Transmission Date: 20190711
  Serious: No
  Sender: FDA-Public Use
  Company Number: US-PFIZER INC-2016422482

PATIENT
  Sex: Female
  Weight: 54 kg

DRUGS (17)
  1. TENORMIN [Concomitant]
     Active Substance: ATENOLOL
     Dosage: 25 MG, 2X/DAY (AM AND PM)
  2. CORTEF [Concomitant]
     Active Substance: HYDROCORTISONE
     Dosage: 25 MG, DAILY (CHANGED TO 5 MG TABS, TAKE 2 IN AM, 2 AT MIDDAY, 5MG AT DINNER)
  3. KLOR-CON M20 [Concomitant]
     Active Substance: POTASSIUM CHLORIDE
     Dosage: 80 MEQ, DAILY (TAKE 4 TABLETS BY MOUTH ONCE DAILY WITH A MEAL 2 IN AM 1 AT LUNCH, 1 AT DINNER)
     Route: 048
  4. VITAMIN D3 [Concomitant]
     Active Substance: CHOLECALCIFEROL
     Dosage: 2000 IU, 1X/DAY
     Route: 048
  5. PRILOSEC [Concomitant]
     Active Substance: OMEPRAZOLE MAGNESIUM
     Dosage: 20 MG, 1X/DAY (BEFORE A MEAL)
     Route: 048
  6. DEMADEX [Concomitant]
     Active Substance: TORSEMIDE
     Dosage: 10 MG, UNK (TAKE ONE TABLET ON MONDAY-WEDNESDAY-FRIDAY)
  7. REVATIO [Suspect]
     Active Substance: SILDENAFIL CITRATE
     Indication: PULMONARY HYPERTENSION
     Dosage: 40 MG, 3X/DAY (TAKE 2 (20MG) TABLETS BY MOUTH 3 TIMES A DAILY (EACH DOSE=40MG))
     Route: 048
     Dates: start: 2001
  8. CALCIUM-CHOLECALCIFEROL (D3) [Concomitant]
     Dosage: UNK, 1X/DAY [CALCIUM: 600MG/COLECALCIFEROL: 200 UNIT]
     Route: 048
  9. COUMADIN [Concomitant]
     Active Substance: WARFARIN SODIUM
     Dosage: UNK (4 MG SUNDAY-THURSDAY 2 MG OTHER DAYS) (TAKING 2 MG MON, WED, AND FRI AND 4 MG ALL OTHER DAYS)
  10. VITAMIN E [Concomitant]
     Active Substance: .ALPHA.-TOCOPHEROL
     Dosage: 200 IU, DAILY (ORAL EVERY DAY)
     Route: 048
  11. ATIVAN [Concomitant]
     Active Substance: LORAZEPAM
     Dosage: 0.5 MG, AS NEEDED (AT BEDTIME IF NEEDED; CAN TAKE 2)
     Route: 048
  12. MAG-OX 400 [Concomitant]
     Dosage: 400 MG, DAILY
     Route: 048
  13. ESTRACE [Concomitant]
     Active Substance: ESTRADIOL
     Dosage: 1 MG, 1X/DAY
  14. DESYREL [Concomitant]
     Active Substance: TRAZODONE HYDROCHLORIDE
     Dosage: 100 MG, 1X/DAY (TAKE 2 TABLETS BY MOUTH AT BEDTIME)
     Route: 048
  15. REVATIO [Suspect]
     Active Substance: SILDENAFIL CITRATE
     Dosage: 60 MG, 3X/DAY
     Route: 048
  16. CORTEF [Concomitant]
     Active Substance: HYDROCORTISONE
     Dosage: 25 MG, DAILY (1 TABLETS BY MOUTH 10 MG. 1 TABLET 10 MG BREAKFAST, 1 TAB AT LUNCH,1/2 TAB AT DINNER)
     Route: 048
  17. ZOCOR [Concomitant]
     Active Substance: SIMVASTATIN
     Dosage: 40 MG, 1X/DAY (AT BEDTIME)
     Route: 048

REACTIONS (2)
  - Prescribed overdose [Unknown]
  - Productive cough [Recovered/Resolved]

NARRATIVE: CASE EVENT DATE: 2001
